FAERS Safety Report 5975923-2 (Version None)
Quarter: 2008Q4

REPORT INFORMATION
  Report Type: 
  Country: None (occurrence: None)
  Receive Date: 20081202
  Receipt Date: 20081126
  Transmission Date: 20090506
  Serious: Yes (Hospitalization)
  Sender: FDA-Public Use
  Company Number: AT-ROCHE-332023

PATIENT
  Sex: Female
  Weight: 62 kg

DRUGS (3)
  1. PEG-INTERFERON ALFA 2A (RO 25-8310) [Suspect]
     Route: 058
     Dates: start: 20020201, end: 20030105
  2. RIBAVIRIN [Suspect]
     Route: 048
     Dates: start: 20020201, end: 20030105
  3. AMANTADINE HCL [Suspect]
     Route: 048
     Dates: start: 20020201, end: 20030105

REACTIONS (1)
  - LYMPHOMA [None]
